FAERS Safety Report 23778223 (Version 1)
Quarter: 2024Q2

REPORT INFORMATION
  Report Type: Spontaneous
  Country: CN (occurrence: CN)
  Receive Date: 20240424
  Receipt Date: 20240424
  Transmission Date: 20240717
  Serious: Yes (Other)
  Sender: FDA-Public Use
  Company Number: CN-PFIZER INC-PV202400052874

PATIENT
  Age: 75 Year
  Sex: Male
  Weight: 70.5 kg

DRUGS (3)
  1. TIGECYCLINE [Suspect]
     Active Substance: TIGECYCLINE
     Indication: Escherichia urinary tract infection
     Dosage: 50 MG, 2X/DAY
     Route: 041
     Dates: start: 20240405, end: 20240407
  2. TIGECYCLINE [Suspect]
     Active Substance: TIGECYCLINE
     Indication: Urinary tract infection enterococcal
  3. SODIUM CHLORIDE [Concomitant]
     Active Substance: SODIUM CHLORIDE
     Indication: Vehicle solution use
     Dosage: 100 ML, 2X/DAY
     Route: 041
     Dates: start: 20240405, end: 20240407

REACTIONS (2)
  - Nausea [Recovering/Resolving]
  - Decreased appetite [Recovering/Resolving]

NARRATIVE: CASE EVENT DATE: 20240407
